FAERS Safety Report 7440353-3 (Version None)
Quarter: 2011Q2

REPORT INFORMATION
  Report Type: 
  Country: None (occurrence: None)
  Receive Date: 20110427
  Receipt Date: 20110419
  Transmission Date: 20111010
  Serious: Yes (Hospitalization)
  Sender: FDA-Public Use
  Company Number: FR-MERCK-1104FRA00108

PATIENT
  Age: 53 Year
  Sex: Male

DRUGS (5)
  1. PRIMAXIN [Suspect]
     Indication: PYREXIA
     Route: 042
     Dates: start: 20110301, end: 20110312
  2. CEFTAZIDIME [Suspect]
     Indication: PYREXIA
     Route: 042
     Dates: start: 20110225, end: 20110312
  3. VANCOMYCIN HCL [Suspect]
     Indication: PYREXIA
     Route: 042
     Dates: start: 20110221, end: 20110312
  4. CANCIDAS [Suspect]
     Route: 042
     Dates: start: 20110301, end: 20110312
  5. PIPERACILLIN SODIUM AND TAZOBACTAM SODIUM [Concomitant]
     Route: 042
     Dates: start: 20110221, end: 20110225

REACTIONS (1)
  - DRUG RASH WITH EOSINOPHILIA AND SYSTEMIC SYMPTOMS [None]
